FAERS Safety Report 5482717-3 (Version None)
Quarter: 2007Q4

REPORT INFORMATION
  Report Type: 
  Country: None (occurrence: None)
  Receive Date: 20071011
  Receipt Date: 20070928
  Transmission Date: 20080405
  Serious: Yes (Hospitalization, Other)
  Sender: FDA-Public Use
  Company Number: US-PFIZER INC-2007082378

PATIENT
  Sex: Female
  Weight: 90.454 kg

DRUGS (9)
  1. CHANTIX [Suspect]
     Indication: SMOKING CESSATION THERAPY
     Dates: start: 20070815, end: 20070928
  2. LOTREL [Concomitant]
  3. WELLBUTRIN [Concomitant]
  4. AMITIZA [Concomitant]
  5. ALL OTHER THERAPEUTIC PRODUCTS [Concomitant]
  6. LEXAPRO [Concomitant]
  7. SIMVASTATIN [Concomitant]
  8. NEXIUM [Concomitant]
  9. LUNESTA [Concomitant]
     Indication: INSOMNIA

REACTIONS (3)
  - HYSTERECTOMY [None]
  - NAUSEA [None]
  - UNEVALUABLE EVENT [None]
